FAERS Safety Report 4323224-0 (Version None)
Quarter: 2004Q1

REPORT INFORMATION
  Report Type: 
  Country: None (occurrence: None)
  Receive Date: 20040322
  Receipt Date: 20040304
  Transmission Date: 20041129
  Serious: Yes (Hospitalization)
  Sender: FDA-Public Use
  Company Number: 2004014977

PATIENT
  Sex: Male

DRUGS (3)
  1. ZOXAN  LP (DOXAZOSIN) [Suspect]
     Indication: ILL-DEFINED DISORDER
     Dosage: UNKNOWN (DAILY), ORAL
     Route: 048
     Dates: start: 20040219
  2. NSAID'S [Concomitant]
  3. THERAPEUTIC RADIOPHARMACEUTICALS [Concomitant]

REACTIONS (4)
  - DYSURIA [None]
  - OEDEMA [None]
  - POST PROCEDURAL COMPLICATION [None]
  - URINARY RETENTION [None]
